FAERS Safety Report 8320570-0 (Version None)
Quarter: 2012Q2

REPORT INFORMATION
  Report Type: 
  Country: None (occurrence: None)
  Receive Date: 20120430
  Receipt Date: 20120424
  Transmission Date: 20120825
  Serious: Yes (Hospitalization)
  Sender: FDA-Public Use
  Company Number: JP-PFIZER INC-2012102821

PATIENT
  Age: 60 Year
  Sex: Male

DRUGS (3)
  1. AZULFIDINE [Suspect]
     Indication: SJOGREN'S SYNDROME
  2. AZULFIDINE [Suspect]
     Indication: ARTHROPATHY
  3. AZULFIDINE [Suspect]
     Indication: SCLERODERMA
     Dosage: 1 G/DAY
     Route: 048
     Dates: start: 20120314

REACTIONS (2)
  - DISSEMINATED INTRAVASCULAR COAGULATION [None]
  - AGRANULOCYTOSIS [None]
